FAERS Safety Report 4565364-7 (Version None)
Quarter: 2005Q1

REPORT INFORMATION
  Report Type: 
  Country: None (occurrence: None)
  Receive Date: 20050126
  Receipt Date: 20050111
  Transmission Date: 20050727
  Serious: Yes (Death)
  Sender: FDA-Public Use
  Company Number: USA041082401

PATIENT
  Age: 50 Year
  Sex: Male
  Weight: 68 kg

DRUGS (5)
  1. FLUOXETINE [Suspect]
     Indication: MAJOR DEPRESSION
     Dosage: 40 MG DAY
     Dates: start: 20040525
  2. OLANZAPINE [Suspect]
     Indication: MAJOR DEPRESSION
  3. LITHIUM [Concomitant]
  4. LORAZEPAM [Concomitant]
  5. LEXAPRO [Concomitant]

REACTIONS (6)
  - ALCOHOL USE [None]
  - BLISTER [None]
  - DRUG TOXICITY [None]
  - PULMONARY CONGESTION [None]
  - PULMONARY OEDEMA [None]
  - TRACHEITIS [None]
